FAERS Safety Report 8321041-8 (Version None)
Quarter: 2012Q2

REPORT INFORMATION
  Report Type: 
  Country: None (occurrence: None)
  Receive Date: 20120430
  Receipt Date: 20120413
  Transmission Date: 20120825
  Serious: No
  Sender: FDA-Public Use
  Company Number: US-JNJFOC-20120406676

PATIENT
  Age: 27 Year
  Sex: Male

DRUGS (3)
  1. DIVALPROEX SODIUM [Concomitant]
  2. SERTRALINE HYDROCHLORIDE [Concomitant]
     Route: 048
  3. INVEGA SUSTENNA [Suspect]
     Indication: SCHIZOPHRENIA
     Route: 030
     Dates: start: 20120412

REACTIONS (1)
  - DRUG DISPENSING ERROR [None]
